FAERS Safety Report 21976733 (Version 1)
Quarter: 2023Q1

REPORT INFORMATION
  Report Type: Spontaneous
  Country: DE (occurrence: DE)
  Receive Date: 20230210
  Receipt Date: 20230210
  Transmission Date: 20230417
  Serious: No
  Sender: FDA-Public Use
  Company Number: None

PATIENT
  Age: 69 Year
  Sex: Female
  Weight: 73 kg

DRUGS (2)
  1. EZETIMIBE [Suspect]
     Active Substance: EZETIMIBE
     Indication: Hyperlipidaemia
     Dosage: 10 MILLIGRAM EVERY 1 DAY
     Route: 048
     Dates: start: 20191220, end: 20200613
  2. ROSUVASTATIN [Suspect]
     Active Substance: ROSUVASTATIN
     Indication: Hyperlipidaemia
     Dosage: 5 MILLIGRAM EVERY 1 DAY
     Route: 048
     Dates: start: 20200101, end: 20220613

REACTIONS (2)
  - Gallbladder disorder [Recovered/Resolved]
  - Weight increased [Recovered/Resolved]
